FAERS Safety Report 5358880-1 (Version None)
Quarter: 2007Q2

REPORT INFORMATION
  Report Type: 
  Country: None (occurrence: None)
  Receive Date: 20070615
  Receipt Date: 20070608
  Transmission Date: 20071010
  Serious: Yes (Other)
  Sender: FDA-Public Use
  Company Number: US-GENENTECH-242740

PATIENT

DRUGS (5)
  1. TNKASE [Suspect]
     Indication: PERIPHERAL ISCHAEMIA
     Dosage: 1.5 MG, UNK
     Route: 013
  2. TNKASE [Suspect]
     Dosage: 0.125 MG/HR, CONTINUOUS
     Route: 013
  3. ABCIXIMAB [Suspect]
     Indication: THROMBOSIS
     Dosage: 0.25 MG/KG, SINGLE
     Route: 040
  4. ABCIXIMAB [Suspect]
     Dosage: 0.125 A?GKGMN, UNK
     Route: 042
  5. HEPARIN SODIUM [Suspect]
     Indication: DRUG USE FOR UNKNOWN INDICATION

REACTIONS (1)
  - ARTERIAL REPAIR [None]
